FAERS Safety Report 4407873-7 (Version None)
Quarter: 2004Q3

REPORT INFORMATION
  Report Type: 
  Country: None (occurrence: None)
  Receive Date: 20040726
  Receipt Date: 20040712
  Transmission Date: 20050211
  Serious: Yes (Other)
  Sender: FDA-Public Use
  Company Number: PHEH2004US07420

PATIENT
  Age: 23 Year
  Sex: Female

DRUGS (3)
  1. ZELNORM [Suspect]
     Indication: IRRITABLE BOWEL SYNDROME
     Dosage: 6 MG, BID
     Dates: start: 20040512, end: 20040713
  2. DEPO-PROVERA [Suspect]
     Indication: CONTRACEPTION
     Dosage: UNK/Q3MOS
     Dates: start: 20000101
  3. FIBERCON [Concomitant]

REACTIONS (2)
  - DRUG INTERACTION [None]
  - METRORRHAGIA [None]
